FAERS Safety Report 14836749 (Version 1)
Quarter: 2018Q2

REPORT INFORMATION
  Report Type: Spontaneous
  Country: DE (occurrence: DE)
  Receive Date: 20180502
  Receipt Date: 20180502
  Transmission Date: 20180711
  Serious: Yes (Hospitalization)
  Sender: FDA-Public Use
  Company Number: DE-DEXPHARM-20180308

PATIENT
  Age: 41 Year
  Sex: Male
  Weight: 80 kg

DRUGS (10)
  1. TESTOSTERON [Suspect]
     Active Substance: TESTOSTERONE
     Dosage: 1-0-0-0
     Route: 030
  2. LEVETIRACETAM. [Suspect]
     Active Substance: LEVETIRACETAM
     Dosage: 1-0-0-0
     Route: 048
  3. NATRIUMCHLORID [Suspect]
     Active Substance: SODIUM CHLORIDE
     Dosage: 1-0-0-0
     Route: 048
  4. AMLODIPINE [Suspect]
     Active Substance: AMLODIPINE BESYLATE
     Dosage: 1-0-0-0
     Route: 048
  5. HYDROCORTISON [Suspect]
     Active Substance: HYDROCORTISONE
     Dosage: 1-0-0-0
     Route: 048
  6. ALLOPURINOL. [Suspect]
     Active Substance: ALLOPURINOL
     Dosage: 1-0-0-0
     Route: 048
  7. LEVOTHYROXIN [Suspect]
     Active Substance: LEVOTHYROXINE
     Dosage: 1-0-0-0
     Route: 048
  8. DESMOPRESSIN [Suspect]
     Active Substance: DESMOPRESSIN
     Dosage: 1-0-0-0
     Route: 048
  9. PANTOPRAZOLE [Suspect]
     Active Substance: PANTOPRAZOLE
     Dosage: 1-0-0-0
     Route: 048
  10. VITAMIN B [Suspect]
     Active Substance: VITAMIN B
     Dosage: 1-0-0-0
     Route: 048

REACTIONS (2)
  - Ascites [Unknown]
  - Oedema peripheral [Unknown]
